FAERS Safety Report 8038428-3 (Version None)
Quarter: 2012Q1

REPORT INFORMATION
  Report Type: 
  Country: None (occurrence: None)
  Receive Date: 20120111
  Receipt Date: 20111201
  Transmission Date: 20120608
  Serious: No
  Sender: FDA-Public Use
  Company Number: US-AMGEN-USASP2011064374

PATIENT
  Sex: Female

DRUGS (2)
  1. ENBREL [Suspect]
     Dates: start: 19981101
  2. ENBREL [Suspect]
     Indication: RHEUMATOID ARTHRITIS
     Dosage: UNK
     Dates: start: 19980101

REACTIONS (1)
  - THERAPEUTIC RESPONSE DECREASED [None]
